FAERS Safety Report 6633875-6 (Version None)
Quarter: 2010Q1

REPORT INFORMATION
  Report Type: 
  Country: None (occurrence: None)
  Receive Date: 20100315
  Receipt Date: 20100303
  Transmission Date: 20100710
  Serious: Yes (Hospitalization)
  Sender: FDA-Public Use
  Company Number: US-JNJFOC-20100302749

PATIENT
  Sex: Female
  Weight: 83.5 kg

DRUGS (9)
  1. DOXIL [Suspect]
     Indication: OVARIAN CANCER
  2. ALL OTHER MEDICATION [Suspect]
     Indication: OVARIAN CANCER
  3. DEXAMETHASONE [Concomitant]
  4. HYDROCHLOROTHIAZIDE [Concomitant]
  5. SERTRALINE [Concomitant]
  6. ONDANSETRON [Concomitant]
  7. ATENOLOL [Concomitant]
  8. PROCHLORPERAZINE [Concomitant]
  9. NON STEROIDAL ANTI-INFLAMMATORY DRUGS [Concomitant]

REACTIONS (1)
  - RENAL FAILURE ACUTE [None]
